FAERS Safety Report 16929343 (Version 1)
Quarter: 2019Q4

REPORT INFORMATION
  Report Type: Report from Study
  Country: US (occurrence: US)
  Receive Date: 20191017
  Receipt Date: 20191017
  Transmission Date: 20200122
  Serious: No
  Sender: FDA-Public Use
  Company Number: NVSC2019US004199

PATIENT
  Age: 8 Year
  Sex: Female
  Weight: 21.77 kg

DRUGS (1)
  1. FOCALIN XR [Suspect]
     Active Substance: DEXMETHYLPHENIDATE HYDROCHLORIDE
     Indication: ATTENTION DEFICIT/HYPERACTIVITY DISORDER
     Dosage: 1 DF, QD
     Route: 048
     Dates: start: 20180127, end: 20180620

REACTIONS (1)
  - Blunted affect [Recovered/Resolved]

NARRATIVE: CASE EVENT DATE: 20180127
